FAERS Safety Report 21469910 (Version 1)
Quarter: 2022Q4

REPORT INFORMATION
  Report Type: 
  Country: None (occurrence: US)
  Receive Date: 20221018
  Receipt Date: 20221018
  Transmission Date: 20230113
  Serious: No
  Sender: FDA-Public Use
  Company Number: US-Rubicon Research Private Limited-2133927

PATIENT

DRUGS (2)
  1. CARVEDILOL [Suspect]
     Active Substance: CARVEDILOL
     Indication: Hypertension
     Route: 048
     Dates: start: 20220720, end: 20220826
  2. METOPROLOL [Suspect]
     Active Substance: METOPROLOL

REACTIONS (9)
  - Somnolence [None]
  - Dizziness [None]
  - Dizziness [None]
  - Dry eye [None]
  - Fatigue [None]
  - Paraesthesia [None]
  - Sleep disorder [None]
  - Chest pain [None]
  - Dysphagia [None]
